FAERS Safety Report 24825745 (Version 1)
Quarter: 2025Q1

REPORT INFORMATION
  Report Type: Report from Study
  Country: FR (occurrence: FR)
  Receive Date: 20250109
  Receipt Date: 20250109
  Transmission Date: 20250409
  Serious: Yes (Hospitalization)
  Sender: VERTEX
  Company Number: FR-VERTEX PHARMACEUTICALS-2025-000065

PATIENT
  Age: 24 Year
  Sex: Male
  Weight: 73 kg

DRUGS (3)
  1. ELEXACAFTOR\IVACAFTOR\TEZACAFTOR [Suspect]
     Active Substance: ELEXACAFTOR\IVACAFTOR\TEZACAFTOR
     Indication: Cystic fibrosis
     Dosage: 75MG IVACAFTOR/ 50MG TEZACAFTOR/ 100MG ELEXACFTOR, 2 TABLETS EVERY DAY
     Route: 048
     Dates: start: 20220515
  2. KALYDECO [Suspect]
     Active Substance: IVACAFTOR
     Indication: Cystic fibrosis
     Dosage: 1 EVERY DAY
     Route: 048
     Dates: start: 20220515
  3. KALYDECO [Suspect]
     Active Substance: IVACAFTOR
     Dosage: 1 EVERY DAY
     Route: 048
     Dates: start: 2024

REACTIONS (1)
  - Hospitalisation [Unknown]
